FAERS Safety Report 7033981-0 (Version None)
Quarter: 2010Q4

REPORT INFORMATION
  Report Type: 
  Country: None (occurrence: None)
  Receive Date: 20101005
  Receipt Date: 20100923
  Transmission Date: 20110411
  Serious: Yes (Hospitalization)
  Sender: FDA-Public Use
  Company Number: US-003568

PATIENT
  Sex: Female
  Weight: 87.0906 kg

DRUGS (7)
  1. TRANEXAMIC ACID [Suspect]
     Indication: UTERINE HAEMORRHAGE
     Dosage: 1300 MG TID
     Dates: start: 20100818, end: 20100820
  2. LUPRON DEPOT [Suspect]
     Indication: UTERINE HAEMORRHAGE
     Dosage: FOR PAST SIX MONTHS
  3. LOESTRIN 1.5/30 [Suspect]
     Indication: UTERINE HAEMORRHAGE
     Dosage: 2 DAILY
     Dates: start: 20100601
  4. IRON [Concomitant]
  5. MULTIPLE VITAMINS [Concomitant]
  6. DARVOCET [Concomitant]
  7. VICODIN [Concomitant]

REACTIONS (14)
  - ANAEMIA OF CHRONIC DISEASE [None]
  - CEREBRAL INFARCTION [None]
  - CEREBRAL MICROANGIOPATHY [None]
  - DEMYELINATION [None]
  - EMPTY SELLA SYNDROME [None]
  - FIBRIN D DIMER INCREASED [None]
  - HEAD INJURY [None]
  - HYPERCOAGULATION [None]
  - ISCHAEMIC STROKE [None]
  - MIGRAINE [None]
  - RED BLOOD CELL SEDIMENTATION RATE INCREASED [None]
  - SINUS TACHYCARDIA [None]
  - VASCULITIS [None]
  - WHITE BLOOD CELL COUNT INCREASED [None]
